FAERS Safety Report 17168929 (Version 1)
Quarter: 2019Q4

REPORT INFORMATION
  Report Type: Spontaneous
  Country: US (occurrence: US)
  Receive Date: 20191217
  Receipt Date: 20191217
  Transmission Date: 20200122
  Serious: No
  Sender: FDA-Public Use
  Company Number: None

PATIENT
  Age: 73 Year
  Sex: Male
  Weight: 105.3 kg

DRUGS (16)
  1. HUMALOG [Concomitant]
     Active Substance: INSULIN LISPRO
  2. ASPIRIN 81MG [Concomitant]
     Active Substance: ASPIRIN
  3. OZEMPIC [Concomitant]
     Active Substance: SEMAGLUTIDE
  4. VIIBRYD [Suspect]
     Active Substance: VILAZODONE HYDROCHLORIDE
     Indication: ANXIETY
     Dosage: ?          QUANTITY:1 TABLET(S);?
     Route: 048
     Dates: start: 20191011, end: 20191024
  5. ATROVASITAN 40 MG [Concomitant]
  6. LISINOPRIL HTZ [Concomitant]
     Active Substance: HYDROCHLOROTHIAZIDE\LISINOPRIL
  7. OMEPRALONE 20MG [Concomitant]
  8. PIOGLITAZONE 30MG [Concomitant]
     Active Substance: PIOGLITAZONE
  9. FUROSEMIDE 20MG [Concomitant]
     Active Substance: FUROSEMIDE
  10. METFORMIN [Concomitant]
     Active Substance: METFORMIN HYDROCHLORIDE
  11. MOTOPROL ER 12.5 [Concomitant]
  12. ALLOPURINOL 300MG [Concomitant]
     Active Substance: ALLOPURINOL
  13. ESCITLOPRAM 10 MG [Concomitant]
  14. NEW VIIBRYD [Concomitant]
  15. VITAMIN D-3 2000 IU [Concomitant]
  16. POTASSIUM CL [Concomitant]
     Active Substance: POTASSIUM CHLORIDE

REACTIONS (1)
  - Atrial fibrillation [None]

NARRATIVE: CASE EVENT DATE: 20191014
